FAERS Safety Report 10422715 (Version 4)
Quarter: 2014Q4

REPORT INFORMATION
  Report Type: Spontaneous
  Country: BE (occurrence: BE)
  Receive Date: 20140902
  Receipt Date: 20141027
  Transmission Date: 20150528
  Serious: Yes (Hospitalization, Other)
  Sender: FDA-Public Use
  Company Number: BE-AMGEN-BELSP2014066057

PATIENT
  Age: 53 Year
  Sex: Female

DRUGS (1)
  1. ENBREL [Suspect]
     Active Substance: ETANERCEPT
     Indication: PSORIASIS
     Dosage: 50 MG, UNK
     Route: 058
     Dates: start: 20140722, end: 20140819

REACTIONS (13)
  - Oropharyngeal pain [Unknown]
  - Loss of consciousness [Unknown]
  - Fall [Unknown]
  - Cardiac disorder [Not Recovered/Not Resolved]
  - Neck deformity [Unknown]
  - Monoplegia [Not Recovered/Not Resolved]
  - Hot flush [Recovering/Resolving]
  - Gait disturbance [Recovering/Resolving]
  - Cerebrovascular accident [Unknown]
  - Cough [Unknown]
  - Neck pain [Recovering/Resolving]
  - Spinal pain [Unknown]
  - Arrhythmia [Not Recovered/Not Resolved]

NARRATIVE: CASE EVENT DATE: 20140819
